FAERS Safety Report 5684131-4 (Version None)
Quarter: 2008Q1

REPORT INFORMATION
  Report Type: 
  Country: None (occurrence: None)
  Receive Date: 20080328
  Receipt Date: 20070607
  Transmission Date: 20080703
  Serious: Yes (Hospitalization)
  Sender: FDA-Public Use
  Company Number: US-AMGEN-US228243

PATIENT
  Sex: Male

DRUGS (10)
  1. NEULASTA [Suspect]
     Indication: CHEMOTHERAPY
     Route: 058
     Dates: start: 20070514
  2. CYTARABINE [Suspect]
     Route: 042
     Dates: start: 20070509
  3. IDARUBICIN HCL [Suspect]
     Route: 042
     Dates: start: 20070509
  4. ETOPOSIDE [Suspect]
     Route: 042
     Dates: start: 20070509
  5. ACYCLOVIR [Concomitant]
     Route: 065
     Dates: start: 20070303
  6. VORICONAZOLE [Concomitant]
     Route: 065
     Dates: start: 20070303
  7. PANTOPRAZOLE SODIUM [Concomitant]
     Route: 065
     Dates: start: 20070316
  8. POTASSIUM CHLORIDE [Concomitant]
     Route: 065
     Dates: start: 20070329
  9. MAGMIN [Concomitant]
     Route: 065
     Dates: start: 20070410
  10. ALLOPURINOL [Concomitant]
     Route: 065
     Dates: start: 20070501

REACTIONS (1)
  - FEBRILE NEUTROPENIA [None]
